FAERS Safety Report 6119121-0 (Version None)
Quarter: 2009Q1

REPORT INFORMATION
  Report Type: 
  Country: None (occurrence: None)
  Receive Date: 20090311
  Receipt Date: 20090224
  Transmission Date: 20090719
  Serious: Yes (Other)
  Sender: FDA-Public Use
  Company Number: 2009S1003295

PATIENT
  Age: 65 Year
  Sex: Male

DRUGS (6)
  1. LISINOPRIL [Suspect]
     Indication: HYPERTENSION
     Dosage: 20 MG; ORAL
     Route: 048
     Dates: start: 20071017, end: 20090113
  2. AMLODIPINE [Concomitant]
  3. ASPIRIN [Concomitant]
  4. CITALOPRAM HYDROBROMIDE [Concomitant]
  5. DOXAZOSIN MESYLATE [Concomitant]
  6. FENOFIBRATE [Concomitant]

REACTIONS (2)
  - GLOMERULAR FILTRATION RATE ABNORMAL [None]
  - TUBULOINTERSTITIAL NEPHRITIS [None]
